FAERS Safety Report 7336020-7 (Version None)
Quarter: 2011Q1

REPORT INFORMATION
  Report Type: 
  Country: None (occurrence: None)
  Receive Date: 20110307
  Receipt Date: 20110224
  Transmission Date: 20110831
  Serious: Yes (Hospitalization)
  Sender: FDA-Public Use
  Company Number: US-ELI_LILLY_AND_COMPANY-US201102007230

PATIENT
  Sex: Female

DRUGS (11)
  1. KLONOPIN [Concomitant]
     Dosage: 1 MG, EACH EVENING
  2. VITAMIN A [Concomitant]
  3. CENTRUM SILVER [Concomitant]
  4. NEURONTIN [Concomitant]
     Dosage: 300 MG, 3/D
  5. PREMARIN [Concomitant]
     Dosage: 0.625 MG, DAILY (1/D)
  6. LOVAZA [Concomitant]
  7. FORTEO [Suspect]
     Indication: OSTEOPOROSIS
     Dosage: 20 UG, DAILY (1/D)
     Dates: start: 20101101
  8. PROZAC [Concomitant]
     Dosage: 40 MG, UNK
  9. ZOCOR [Concomitant]
     Dosage: 30 MG, UNK
  10. VITAMIN B [Concomitant]
  11. VITAMIN D [Concomitant]

REACTIONS (1)
  - BRONCHITIS [None]
